FAERS Safety Report 14150849 (Version 2)
Quarter: 2019Q2

REPORT INFORMATION
  Report Type: Report from Study
  Country: DE (occurrence: DE)
  Receive Date: 20171102
  Receipt Date: 20190528
  Transmission Date: 20190711
  Serious: Yes (Other)
  Sender: FDA-Public Use
  Company Number: DE-ROCHE-2017072

PATIENT
  Age: 67 Year
  Sex: Female
  Weight: 87 kg

DRUGS (7)
  1. MARCUMAR [Concomitant]
     Active Substance: PHENPROCOUMON
     Route: 065
     Dates: start: 20121005
  2. PACLITAXEL. [Concomitant]
     Active Substance: PACLITAXEL
     Indication: BREAST CANCER
     Route: 065
     Dates: start: 20120116, end: 20120116
  3. PACLITAXEL. [Concomitant]
     Active Substance: PACLITAXEL
     Route: 065
     Dates: start: 20120419, end: 20120419
  4. PACLITAXEL. [Concomitant]
     Active Substance: PACLITAXEL
     Dosage: DOSE MISSED ON 31/JAN/2012 AND 21/FEB/2012
     Route: 065
     Dates: start: 20120124, end: 20120412
  5. BEVACIZUMAB. [Suspect]
     Active Substance: BEVACIZUMAB
     Indication: BREAST CANCER
     Dosage: LAST DOSE PRIOR TO SAE: 30/JAN/2013
     Route: 065
     Dates: start: 20120117, end: 20130327
  6. CAPECITABINE. [Suspect]
     Active Substance: CAPECITABINE
     Indication: BREAST CANCER
     Route: 048
     Dates: start: 20120727, end: 20130131
  7. IRBESARTAN. [Concomitant]
     Active Substance: IRBESARTAN
     Indication: BREAST CANCER
     Route: 065
     Dates: start: 20050101

REACTIONS (4)
  - Liver disorder [Recovering/Resolving]
  - Bone pain [Recovered/Resolved]
  - Pelvic pain [Recovered/Resolved]
  - Ill-defined disorder [Recovering/Resolving]

NARRATIVE: CASE EVENT DATE: 20130717
